FAERS Safety Report 4408453-X (Version None)
Quarter: 2004Q3

REPORT INFORMATION
  Report Type: 
  Country: None (occurrence: None)
  Receive Date: 20040723
  Receipt Date: 20040714
  Transmission Date: 20050211
  Serious: Yes (Life-Threatening, Hospitalization)
  Sender: FDA-Public Use
  Company Number: HQWYE890206JUL04

PATIENT
  Age: 35 Year
  Sex: Female

DRUGS (1)
  1. TRIONETTA (LEVONORGESTRE/ETHINYL ESTRADIOL/INERT, TABLET) [Suspect]
     Indication: ORAL CONTRACEPTION
     Dosage: 1 TABLET DAILY ORAL
     Route: 048
     Dates: start: 19980509, end: 20040312

REACTIONS (6)
  - BASILAR ARTERY THROMBOSIS [None]
  - BLOOD PRESSURE INCREASED [None]
  - CEREBRAL INFARCTION [None]
  - COORDINATION ABNORMAL [None]
  - DYSARTHRIA [None]
  - SENSORY DISTURBANCE [None]
